FAERS Safety Report 16437015 (Version 1)
Quarter: 2019Q2

REPORT INFORMATION
  Report Type: Report from Study
  Country: CA (occurrence: CA)
  Receive Date: 20190614
  Receipt Date: 20190614
  Transmission Date: 20190711
  Serious: Yes (Other)
  Sender: FDA-Public Use
  Company Number: CA-AMGEN-CANCT2019032322

PATIENT
  Age: 65 Year
  Sex: Female

DRUGS (3)
  1. NORTRIPTYLINE [Concomitant]
     Active Substance: NORTRIPTYLINE
     Indication: MIGRAINE
     Dosage: UNK
     Route: 065
  2. AIMOVIG [Suspect]
     Active Substance: ERENUMAB-AOOE
     Dosage: 70 MILLIGRAM, QMO
     Route: 048
     Dates: start: 20190501, end: 20190606
  3. AIMOVIG [Suspect]
     Active Substance: ERENUMAB-AOOE
     Indication: MIGRAINE
     Dosage: UNK
     Route: 065
     Dates: start: 20190221

REACTIONS (7)
  - Malaise [Unknown]
  - Drug ineffective [Unknown]
  - Dizziness [Unknown]
  - Blood pressure increased [Unknown]
  - Blood glucose increased [Unknown]
  - Syncope [Unknown]
  - Migraine [Unknown]

NARRATIVE: CASE EVENT DATE: 20190501
